FAERS Safety Report 17072037 (Version 1)
Quarter: 2019Q4

REPORT INFORMATION
  Report Type: Spontaneous
  Country: US (occurrence: US)
  Receive Date: 20191123
  Receipt Date: 20191123
  Transmission Date: 20200122
  Serious: No
  Sender: FDA-Public Use
  Company Number: None

PATIENT
  Age: 23 Year
  Sex: Female
  Weight: 51.75 kg

DRUGS (3)
  1. XULANE [Suspect]
     Active Substance: ETHINYL ESTRADIOL\NORELGESTROMIN
     Indication: CONTRACEPTION
     Dosage: ?          OTHER STRENGTH:MCG;QUANTITY:3 PATCH(ES);OTHER FREQUENCY:ONCE A WEEK;?
     Route: 062
     Dates: start: 20191118
  2. MULTI VITAMIN [Concomitant]
     Active Substance: VITAMINS
  3. SIMPLY BALANCED HAIR + SKIN [Concomitant]

REACTIONS (2)
  - Rash erythematous [None]
  - Skin disorder [None]

NARRATIVE: CASE EVENT DATE: 20191122
